FAERS Safety Report 7105345-2 (Version None)
Quarter: 2010Q4

REPORT INFORMATION
  Report Type: 
  Country: None (occurrence: None)
  Receive Date: 20101116
  Receipt Date: 20101105
  Transmission Date: 20110411
  Serious: Yes (Hospitalization, Other)
  Sender: FDA-Public Use
  Company Number: BR-US-EMD SERONO, INC.-7026730

PATIENT
  Sex: Female

DRUGS (9)
  1. REBIF [Suspect]
     Indication: RELAPSING-REMITTING MULTIPLE SCLEROSIS
     Route: 058
     Dates: start: 20030815
  2. AMPLICTIL [Concomitant]
  3. TOPIRAMATE [Concomitant]
  4. RIVOTRIL [Concomitant]
  5. FRISIUM [Concomitant]
  6. AMITRIPTYLINE HCL [Concomitant]
  7. DIAZEPAM [Concomitant]
  8. LISADOR [Concomitant]
  9. PROMETAZOL [Concomitant]

REACTIONS (2)
  - BONE EROSION [None]
  - PAIN IN EXTREMITY [None]
